FAERS Safety Report 5669858-2 (Version None)
Quarter: 2008Q1

REPORT INFORMATION
  Report Type: 
  Country: None (occurrence: None)
  Receive Date: 20080317
  Receipt Date: 20080305
  Transmission Date: 20080703
  Serious: Yes (Death, Other)
  Sender: FDA-Public Use
  Company Number: AR-PFIZER INC-2008014058

PATIENT
  Sex: Female
  Weight: 65 kg

DRUGS (6)
  1. LYRICA [Suspect]
     Indication: POLYNEUROPATHY
     Route: 048
  2. DEXAMETHASONE TAB [Concomitant]
     Route: 048
  3. RANITIDINE [Concomitant]
     Route: 048
  4. THIOCTIC ACID [Concomitant]
     Route: 048
  5. FOLIC ACID [Concomitant]
     Route: 048
  6. MAGNESIUM CITRATE [Concomitant]
     Route: 048

REACTIONS (7)
  - BACK PAIN [None]
  - BONE PAIN [None]
  - DEATH [None]
  - DIPLOPIA [None]
  - INCREASED APPETITE [None]
  - SOMNOLENCE [None]
  - WEIGHT INCREASED [None]
